FAERS Safety Report 7458227-0 (Version None)
Quarter: 2011Q2

REPORT INFORMATION
  Report Type: 
  Country: None (occurrence: None)
  Receive Date: 20110502
  Receipt Date: 20110502
  Transmission Date: 20111010
  Serious: Yes (Other)
  Sender: FDA-Public Use
  Company Number: None

PATIENT
  Sex: Female
  Weight: 111.1313 kg

DRUGS (1)
  1. ANASTROZOLE [Suspect]
     Indication: ANTIOESTROGEN THERAPY
     Dosage: 1MG DAILY PO
     Route: 048
     Dates: start: 20101101, end: 20110429

REACTIONS (7)
  - INSOMNIA [None]
  - HEADACHE [None]
  - HOT FLUSH [None]
  - HYPERHIDROSIS [None]
  - MOOD SWINGS [None]
  - EMOTIONAL DISORDER [None]
  - ARTHRALGIA [None]
